FAERS Safety Report 23297935 (Version 3)
Quarter: 2024Q1

REPORT INFORMATION
  Report Type: Report from Study
  Country: US (occurrence: US)
  Receive Date: 20231214
  Receipt Date: 20240301
  Transmission Date: 20240409
  Serious: Yes (Hospitalization, Other)
  Sender: FDA-Public Use
  Company Number: US-HORIZON THERAPEUTICS-HZN-2023-010333

PATIENT

DRUGS (2)
  1. KRYSTEXXA [Suspect]
     Active Substance: PEGLOTICASE
     Indication: Gout
     Dosage: 8 MG, EVERY 2 WEEKS
     Route: 042
     Dates: start: 20230928
  2. KRYSTEXXA [Suspect]
     Active Substance: PEGLOTICASE
     Dosage: UNK INFUSION
     Route: 042
     Dates: start: 20231128

REACTIONS (7)
  - Hypotension [Unknown]
  - Loss of consciousness [Unknown]
  - Sepsis [Unknown]
  - Urinary tract infection [Unknown]
  - Blood urea increased [Unknown]
  - Blood creatinine increased [Unknown]
  - Fatigue [Unknown]

NARRATIVE: CASE EVENT DATE: 20231101
